FAERS Safety Report 9853310 (Version 2)
Quarter: 2014Q1

REPORT INFORMATION
  Report Type: Spontaneous
  Country: US (occurrence: US)
  Receive Date: 20140129
  Receipt Date: 20140304
  Transmission Date: 20141002
  Serious: Yes (Other)
  Sender: FDA-Public Use
  Company Number: US-JNJFOC-20140113121

PATIENT
  Age: 58 Year
  Sex: Male

DRUGS (1)
  1. CLADRIBINE [Suspect]
     Indication: HAIRY CELL LEUKAEMIA
     Dosage: AS A 7-DAY CONTINUOUS INTRAVENOUS INFUSION
     Route: 042
     Dates: start: 19930205, end: 19930212

REACTIONS (1)
  - Prostate cancer [Unknown]
